FAERS Safety Report 7495443-6 (Version None)
Quarter: 2011Q2

REPORT INFORMATION
  Report Type: 
  Country: None (occurrence: None)
  Receive Date: 20110523
  Receipt Date: 20110413
  Transmission Date: 20111010
  Serious: No
  Sender: FDA-Public Use
  Company Number: US-TYCO HEALTHCARE/MALLINCKRODT-T201100774

PATIENT
  Sex: Female
  Weight: 58.957 kg

DRUGS (7)
  1. FENTANYL-100 [Suspect]
     Indication: PAIN
     Dosage: 75 UG/HR Q 72 HOURS
     Route: 062
     Dates: start: 20110406
  2. ZANAFLEX [Concomitant]
     Indication: MUSCULOSKELETAL DISCOMFORT
  3. PROPRANOLOL [Concomitant]
     Indication: HEADACHE
  4. OXYBUTYNIN [Concomitant]
     Indication: BLADDER DISORDER
  5. CYMBALTA [Concomitant]
     Indication: DEPRESSION
  6. OXYCODONE HCL [Concomitant]
     Indication: PAIN
  7. NEURONTIN [Concomitant]
     Indication: NEURALGIA

REACTIONS (1)
  - DRUG EFFECT DECREASED [None]
